FAERS Safety Report 7152358-0 (Version None)
Quarter: 2010Q4

REPORT INFORMATION
  Report Type: 
  Country: None (occurrence: None)
  Receive Date: 20101209
  Receipt Date: 20101209
  Transmission Date: 20110411
  Serious: Yes (Other)
  Sender: FDA-Public Use
  Company Number: None

PATIENT
  Sex: Female
  Weight: 55.7924 kg

DRUGS (4)
  1. SOTALOL HCL [Suspect]
     Indication: ATRIAL FIBRILLATION
     Dosage: 80MG BID PO; 40MG QHR P.O.
     Route: 048
     Dates: start: 20100414
  2. SOTALOL HCL [Suspect]
     Indication: ATRIAL FLUTTER
     Dosage: 80MG BID PO; 40MG QHR P.O.
     Route: 048
     Dates: start: 20100414
  3. SOTALOL HCL [Suspect]
     Indication: ATRIAL FIBRILLATION
     Dosage: 80MG BID PO; 40MG QHR P.O.
     Route: 048
     Dates: start: 20100618
  4. SOTALOL HCL [Suspect]
     Indication: ATRIAL FLUTTER
     Dosage: 80MG BID PO; 40MG QHR P.O.
     Route: 048
     Dates: start: 20100618

REACTIONS (4)
  - ANXIETY [None]
  - CRYING [None]
  - DIZZINESS [None]
  - HYPERHIDROSIS [None]
